FAERS Safety Report 4953524-2 (Version None)
Quarter: 2006Q1

REPORT INFORMATION
  Report Type: 
  Country: None (occurrence: None)
  Receive Date: 20060324
  Receipt Date: 20060301
  Transmission Date: 20060701
  Serious: Yes (Other)
  Sender: FDA-Public Use
  Company Number: JP-ROCHE-438970

PATIENT
  Age: 10 Year
  Sex: Male
  Weight: 40 kg

DRUGS (8)
  1. TAMIFLU [Suspect]
     Route: 048
     Dates: start: 20060214, end: 20060214
  2. TAMIFLU [Suspect]
     Route: 048
     Dates: start: 20060215, end: 20060216
  3. TAMIFLU [Suspect]
     Route: 048
     Dates: start: 20060217, end: 20060217
  4. PERIACTIN [Concomitant]
     Route: 048
     Dates: start: 20060214, end: 20060217
  5. MUCODYNE [Concomitant]
     Route: 048
     Dates: start: 20060214, end: 20060217
  6. BRICANYL [Concomitant]
     Route: 048
     Dates: start: 20060214, end: 20060217
  7. LETIGEN [Concomitant]
     Route: 048
     Dates: start: 20060214, end: 20060217
  8. ALIMEZINE [Concomitant]
     Route: 048
     Dates: start: 20060214, end: 20060217

REACTIONS (1)
  - HYPOTHERMIA [None]
